FAERS Safety Report 13617980 (Version 3)
Quarter: 2017Q2

REPORT INFORMATION
  Report Type: Spontaneous
  Country: JP (occurrence: JP)
  Receive Date: 20170606
  Receipt Date: 20170615
  Transmission Date: 20170830
  Serious: Yes (Death, Other)
  Sender: FDA-Public Use
  Company Number: PHJP2017JP018268

PATIENT
  Age: 77 Year
  Sex: Female

DRUGS (1)
  1. ZOMETA [Suspect]
     Active Substance: ZOLEDRONIC ACID
     Indication: METASTASES TO BONE
     Dosage: 4 MG, UNK
     Route: 041
     Dates: start: 201301, end: 201512

REACTIONS (5)
  - Fistula [Unknown]
  - Exposed bone in jaw [Unknown]
  - Inflammation [Unknown]
  - Extradural abscess [Fatal]
  - Osteonecrosis of jaw [Unknown]

NARRATIVE: CASE EVENT DATE: 201302
